FAERS Safety Report 13348224 (Version 2)
Quarter: 2017Q2

REPORT INFORMATION
  Report Type: Report from Study
  Country: US (occurrence: US)
  Receive Date: 20170318
  Receipt Date: 20170526
  Transmission Date: 20170830
  Serious: Yes (Death)
  Sender: FDA-Public Use
  Company Number: US-B.I. PHARMACEUTICALS,INC./RIDGEFIELD-2017-BI-015152

PATIENT
  Age: 58 Year
  Sex: Female

DRUGS (2)
  1. AMINOPHYLLINE. [Concomitant]
     Active Substance: AMINOPHYLLINE
     Indication: PROPHYLAXIS
     Dosage: DOSE: 50 TO 125 MG OVER 30 SEC ROUTINELY ADMINISTERED 1 MINIMUM OF 3 MIN AFTER RADIOTRACER INJECTION
     Route: 042
  2. PERSANTIN [Suspect]
     Active Substance: DIPYRIDAMOLE
     Indication: PRODUCT USED FOR UNKNOWN INDICATION
     Dosage: DOSE: 0.56 MG/KG INFUSED OVER 4 MIN
     Route: 065

REACTIONS (2)
  - Ventricular tachycardia [Fatal]
  - Pulseless electrical activity [Fatal]
